FAERS Safety Report 19516746 (Version 1)
Quarter: 2021Q3

REPORT INFORMATION
  Report Type: Spontaneous
  Country: GB (occurrence: GB)
  Receive Date: 20210711
  Receipt Date: 20210711
  Transmission Date: 20211014
  Serious: Yes (Other)
  Sender: FDA-Public Use
  Company Number: GB-ORGANON-O2107GBR000445

PATIENT
  Age: 27 Year
  Sex: Female
  Weight: 53 kg

DRUGS (2)
  1. MODERNA COVID?19 VACCINE [Suspect]
     Active Substance: CX-024414
     Dosage: DOSE 1
     Dates: start: 20210621
  2. NEXPLANON [Suspect]
     Active Substance: ETONOGESTREL
     Dosage: UNK

REACTIONS (4)
  - Haemorrhage [Recovering/Resolving]
  - Intermenstrual bleeding [Recovered/Resolved]
  - Dysmenorrhoea [Recovered/Resolved]
  - Premenstrual pain [Recovered/Resolved]
